FAERS Safety Report 7502970-1 (Version None)
Quarter: 2011Q2

REPORT INFORMATION
  Report Type: 
  Country: None (occurrence: None)
  Receive Date: 20110525
  Receipt Date: 20100915
  Transmission Date: 20111010
  Serious: No
  Sender: FDA-Public Use
  Company Number: US-NOVEN-ALL1-2010-04894

PATIENT
  Age: 13 Year
  Sex: Male

DRUGS (3)
  1. UNSPECIFIED SLEEP MEDICATIONS [Concomitant]
     Dosage: UNK MG, UNKNOWN
     Route: 048
  2. UNSPECIFIED GROWTH HORMONES [Concomitant]
     Dosage: UNK, UNKNOWN
     Route: 065
  3. DAYTRANA [Suspect]
     Dosage: UNK MG, UNKNOWN
     Route: 062
     Dates: start: 20100801

REACTIONS (1)
  - MYDRIASIS [None]
